FAERS Safety Report 20736989 (Version 3)
Quarter: 2022Q2

REPORT INFORMATION
  Report Type: Spontaneous
  Country: US (occurrence: US)
  Receive Date: 20220421
  Receipt Date: 20220601
  Transmission Date: 20220721
  Serious: No
  Sender: FDA-Public Use
  Company Number: US-PFIZER INC-202200585323

PATIENT
  Age: 62 Year
  Sex: Female
  Weight: 72.12 kg

DRUGS (5)
  1. PAXLOVID [Suspect]
     Active Substance: NIRMATRELVIR\RITONAVIR
     Indication: COVID-19 treatment
     Dosage: UNK, 2X/DAY (NIRMATREIVIR 150MG EACH AND 2 RITONAVIR 100MG EACH AND ITS TWICE A DAY)
     Dates: start: 20220413
  2. PAXLOVID [Suspect]
     Active Substance: NIRMATRELVIR\RITONAVIR
     Dosage: UNK
  3. HUMALOG [Concomitant]
     Active Substance: INSULIN LISPRO
     Indication: Type 1 diabetes mellitus
     Dosage: UNK (UP TO 5 INJECTIONS A DAY, ON AVERAGE DAY DOES NOT EXCEED 25 UNITS)
     Dates: start: 2002
  4. SIMVASTATIN [Concomitant]
     Active Substance: SIMVASTATIN
     Indication: Blood cholesterol increased
     Dosage: 40 MG, 1X/DAY
     Dates: start: 2015, end: 20220410
  5. ENALAPRIL [Concomitant]
     Active Substance: ENALAPRIL
     Indication: Type 1 diabetes mellitus
     Dosage: 40 MG, 1X/DAY
     Dates: start: 2015

REACTIONS (3)
  - Dysgeusia [Unknown]
  - Nausea [Unknown]
  - Incorrect dose administered [Unknown]

NARRATIVE: CASE EVENT DATE: 20220401
